FAERS Safety Report 16343432 (Version 4)
Quarter: 2019Q3

REPORT INFORMATION
  Report Type: Spontaneous
  Country: IT (occurrence: IT)
  Receive Date: 20190522
  Receipt Date: 20190726
  Transmission Date: 20191004
  Serious: Yes (Death, Hospitalization)
  Sender: FDA-Public Use
  Company Number: IT-ASTRAZENECA-2019SE74407

PATIENT
  Age: 26600 Day
  Sex: Female

DRUGS (4)
  1. TAGRISSO [Suspect]
     Active Substance: OSIMERTINIB
     Indication: NON-SMALL CELL LUNG CANCER METASTATIC
     Route: 048
     Dates: start: 20190308, end: 20190426
  2. HEPARIN [Concomitant]
     Active Substance: HEPARIN SODIUM
  3. PROTON PUMP INHIBITORS [Concomitant]
     Active Substance: UNSPECIFIED INGREDIENT
  4. CORTISONE [Concomitant]
     Active Substance: CORTISONE

REACTIONS (13)
  - Pleural effusion [Unknown]
  - Leukocytosis [Unknown]
  - Drug abuse [Unknown]
  - Pulmonary embolism [Unknown]
  - Disorientation [Fatal]
  - Anaemia [Fatal]
  - Malignant neoplasm progression [Fatal]
  - Pneumonia [Fatal]
  - Respiratory failure [Fatal]
  - Inflammation [Unknown]
  - Gastritis erosive [Fatal]
  - Cachexia [Fatal]
  - Pneumonitis [Unknown]

NARRATIVE: CASE EVENT DATE: 20190302
